FAERS Safety Report 7014549-9 (Version None)
Quarter: 2010Q3

REPORT INFORMATION
  Report Type: 
  Country: None (occurrence: None)
  Receive Date: 20100927
  Receipt Date: 20100915
  Transmission Date: 20110219
  Serious: Yes (Hospitalization)
  Sender: FDA-Public Use
  Company Number: DE-ELI_LILLY_AND_COMPANY-DE201009006175

PATIENT
  Sex: Female

DRUGS (8)
  1. RALOXIFENE HYDROCHLORIDE [Suspect]
     Indication: OSTEOPOROSIS
     Dosage: 60 MG, DAILY (1/D)
     Route: 048
  2. RALOXIFENE HYDROCHLORIDE [Suspect]
     Dosage: 120 MG, UNK
     Dates: start: 20100914, end: 20100914
  3. METOCLOPRAMIDE [Concomitant]
     Dosage: 10 MG, 3/D
  4. METOCLOPRAMIDE [Concomitant]
     Dosage: 40 MG, UNK
     Dates: start: 20100914, end: 20100914
  5. AMLODIPINE [Concomitant]
     Dosage: 5 MG, DAILY (1/D)
  6. AMLODIPINE [Concomitant]
     Dosage: 10 MG, UNK
     Dates: start: 20100914, end: 20100914
  7. LEVOFLOXACIN [Concomitant]
     Dosage: 500 MG, DAILY (1/D)
  8. LEVOFLOXACIN [Concomitant]
     Dosage: 1000 MG, UNK
     Dates: start: 20100914, end: 20100914

REACTIONS (2)
  - ACCIDENTAL OVERDOSE [None]
  - PAIN [None]
